FAERS Safety Report 5930383-2 (Version None)
Quarter: 2008Q4

REPORT INFORMATION
  Report Type: 
  Country: None (occurrence: None)
  Receive Date: 20081021
  Receipt Date: 20081009
  Transmission Date: 20090506
  Serious: No
  Sender: FDA-Public Use
  Company Number: 20085549

PATIENT
  Sex: Male

DRUGS (1)
  1. LIORESAL [Suspect]
     Indication: MUSCLE SPASTICITY
     Dosage: MCG, DAILY, INTRATHECAL
     Route: 039

REACTIONS (6)
  - DEVICE DISLOCATION [None]
  - GAIT DISTURBANCE [None]
  - MUSCLE DISORDER [None]
  - POST PROCEDURAL COMPLICATION [None]
  - POSTURE ABNORMAL [None]
  - PROCEDURAL COMPLICATION [None]
